FAERS Safety Report 4785664-5 (Version None)
Quarter: 2005Q3

REPORT INFORMATION
  Report Type: 
  Country: None (occurrence: None)
  Receive Date: 20050930
  Receipt Date: 20050930
  Transmission Date: 20060218
  Serious: No
  Sender: FDA-Public Use
  Company Number: None

PATIENT
  Age: 51 Year
  Sex: Male

DRUGS (9)
  1. LISINOPRIL [Suspect]
  2. LANOXIN [Concomitant]
  3. GEMFIBROZIL [Concomitant]
  4. ASPIRIN [Concomitant]
  5. METFORMIN [Concomitant]
  6. HYDROCHLOROTHIAZIDE [Concomitant]
  7. LISINOPRIL [Concomitant]
  8. BENADRYL [Concomitant]
  9. NORVASC [Concomitant]

REACTIONS (3)
  - ANGIONEUROTIC OEDEMA [None]
  - PARAESTHESIA [None]
  - SWELLING FACE [None]
